FAERS Safety Report 13345781 (Version 1)
Quarter: 2017Q1

REPORT INFORMATION
  Report Type: Spontaneous
  Country: GB (occurrence: GB)
  Receive Date: 20170317
  Receipt Date: 20170317
  Transmission Date: 20170428
  Serious: Yes (Other)
  Sender: FDA-Public Use
  Company Number: GB-CORDEN PHARMA LATINA S.P.A.-GB-2017COR000064

PATIENT
  Age: 22 Year
  Sex: Female

DRUGS (5)
  1. ETOPOSIDE. [Suspect]
     Active Substance: ETOPOSIDE
     Indication: NEPHROBLASTOMA
     Dosage: 200 MG/M2, 9 DOSES
  2. CYCLOPHOSPHAMIDE. [Suspect]
     Active Substance: CYCLOPHOSPHAMIDE
     Indication: NEPHROBLASTOMA
     Dosage: 500 MG/M2, 12 DOSES
  3. MELPHALAN [Suspect]
     Active Substance: MELPHALAN
     Indication: NEPHROBLASTOMA
     Dosage: 200 MG/M2, 1 DOSE
  4. DOXORUBICIN [Suspect]
     Active Substance: DOXORUBICIN
     Indication: NEPHROBLASTOMA
     Dosage: 30 MG/M2, 6 DOSES
  5. CARBOPLATIN. [Suspect]
     Active Substance: CARBOPLATIN
     Indication: NEPHROBLASTOMA
     Dosage: CARBOPLATIN AUC 10; 3 DOSES

REACTIONS (1)
  - Ovarian failure [Not Recovered/Not Resolved]
